FAERS Safety Report 10430778 (Version 2)
Quarter: 2014Q4

REPORT INFORMATION
  Report Type: Report from Study
  Country: GB (occurrence: GB)
  Receive Date: 20140904
  Receipt Date: 20141016
  Transmission Date: 20150528
  Serious: Yes (Other)
  Sender: FDA-Public Use
  Company Number: GB-SA-2014SA100811

PATIENT
  Age: 53 Year
  Sex: Male

DRUGS (10)
  1. AUBAGIO [Suspect]
     Active Substance: TERIFLUNOMIDE
     Route: 048
  2. CARBAMAZEPINE. [Concomitant]
     Active Substance: CARBAMAZEPINE
  3. BACLOFEN. [Concomitant]
     Active Substance: BACLOFEN
  4. FINASTERIDE. [Concomitant]
     Active Substance: FINASTERIDE
  5. RAMIPRIL. [Concomitant]
     Active Substance: RAMIPRIL
  6. ASPIRIN. [Concomitant]
     Active Substance: ASPIRIN
  7. AUBAGIO [Suspect]
     Active Substance: TERIFLUNOMIDE
     Route: 048
  8. CLONAZEPAM. [Concomitant]
     Active Substance: CLONAZEPAM
  9. RABEPRAZOLE [Concomitant]
     Active Substance: RABEPRAZOLE
  10. ATENOLOL. [Concomitant]
     Active Substance: ATENOLOL

REACTIONS (2)
  - Dysuria [Recovered/Resolved]
  - Urinary retention [Recovered/Resolved]

NARRATIVE: CASE EVENT DATE: 2000
